FAERS Safety Report 14266713 (Version 2)
Quarter: 2017Q4

REPORT INFORMATION
  Report Type: Spontaneous
  Country: ES (occurrence: ES)
  Receive Date: 20171211
  Receipt Date: 20171222
  Transmission Date: 20180321
  Serious: Yes (Other)
  Sender: FDA-Public Use
  Company Number: ES-ENDO PHARMACEUTICALS INC-2017-008098

PATIENT
  Age: 42 Year
  Sex: Female

DRUGS (7)
  1. MIDAZOLAM [Concomitant]
     Active Substance: MIDAZOLAM HYDROCHLORIDE
     Indication: ENDOTRACHEAL INTUBATION
     Dosage: 3 MG, UNKNOWN
     Route: 042
  2. MIDAZOLAM [Concomitant]
     Active Substance: MIDAZOLAM HYDROCHLORIDE
     Indication: MECHANICAL VENTILATION
  3. BENZODIAZEPINE RELATED DRUGS [Concomitant]
     Active Substance: BENZODIAZEPINE
     Indication: DEPRESSION
     Dosage: UNK UNK, UNKNOWN
     Route: 065
  4. KETALAR [Suspect]
     Active Substance: KETAMINE HYDROCHLORIDE
     Indication: MECHANICAL VENTILATION
  5. ROCURONIUM [Concomitant]
     Active Substance: ROCURONIUM BROMIDE
     Indication: ENDOTRACHEAL INTUBATION
     Dosage: 0.8 MG/KG, UNKNOWN
     Route: 042
  6. ROCURONIUM [Concomitant]
     Active Substance: ROCURONIUM BROMIDE
     Indication: MECHANICAL VENTILATION
  7. KETALAR [Suspect]
     Active Substance: KETAMINE HYDROCHLORIDE
     Indication: ENDOTRACHEAL INTUBATION
     Dosage: 2 MG/KG, UNKNOWN
     Route: 042

REACTIONS (1)
  - Cardiac arrest [Unknown]
